FAERS Safety Report 25491596 (Version 2)
Quarter: 2025Q3

REPORT INFORMATION
  Report Type: Report from Study
  Country: TW (occurrence: TW)
  Receive Date: 20250629
  Receipt Date: 20250702
  Transmission Date: 20251021
  Serious: Yes (Hospitalization)
  Sender: ABBVIE
  Company Number: TW-ABBVIE-6343709

PATIENT
  Age: 63 Year
  Sex: Female
  Weight: 53 kg

DRUGS (4)
  1. HUMIRA [Suspect]
     Active Substance: ADALIMUMAB
     Indication: Rheumatoid arthritis
     Route: 058
     Dates: start: 20240611, end: 20250415
  2. RINVOQ [Suspect]
     Active Substance: UPADACITINIB
     Indication: Rheumatoid arthritis
     Route: 048
     Dates: start: 20250429, end: 20250623
  3. SULFASALAZINE [Concomitant]
     Active Substance: SULFASALAZINE
     Indication: Rheumatoid arthritis
     Route: 048
     Dates: start: 20200519
  4. PREDNISOLONE [Concomitant]
     Active Substance: PREDNISOLONE
     Indication: Rheumatoid arthritis
     Route: 048
     Dates: start: 20221018

REACTIONS (5)
  - Hepatic cancer [Not Recovered/Not Resolved]
  - Nephrolithiasis [Unknown]
  - Malaise [Unknown]
  - Feeling abnormal [Unknown]
  - Sleep disorder [Unknown]

NARRATIVE: CASE EVENT DATE: 20250613
